FAERS Safety Report 19586919 (Version 1)
Quarter: 2021Q3

REPORT INFORMATION
  Report Type: Other
  Country: US (occurrence: US)
  Receive Date: 20210721
  Receipt Date: 20210721
  Transmission Date: 20211014
  Serious: Yes (Hospitalization)
  Sender: FDA-Public Use
  Company Number: US-ROCHE-2871588

PATIENT
  Sex: Male

DRUGS (1)
  1. OCREVUS [Suspect]
     Active Substance: OCRELIZUMAB
     Indication: DEMYELINATION
     Route: 065
     Dates: start: 20210628

REACTIONS (4)
  - Gastrointestinal inflammation [Unknown]
  - Enteritis infectious [Unknown]
  - Gastrointestinal pain [Unknown]
  - Off label use [Unknown]
